FAERS Safety Report 10022718 (Version 1)
Quarter: 2014Q1

REPORT INFORMATION
  Report Type: Spontaneous
  Country: ES (occurrence: ES)
  Receive Date: 20140319
  Receipt Date: 20140319
  Transmission Date: 20141002
  Serious: Yes (Life-Threatening, Hospitalization)
  Sender: FDA-Public Use
  Company Number: ES-PFIZER INC-2014077372

PATIENT
  Age: 31 Year
  Sex: Female

DRUGS (1)
  1. LOETTE [Suspect]
     Indication: ORAL CONTRACEPTION
     Dosage: (100/20 UG, 21 TABLETS)
     Route: 048

REACTIONS (1)
  - Yellow fever [Recovered/Resolved]
